FAERS Safety Report 5066293-5 (Version None)
Quarter: 2006Q3

REPORT INFORMATION
  Report Type: 
  Country: None (occurrence: None)
  Receive Date: 20060801
  Receipt Date: 20060529
  Transmission Date: 20061208
  Serious: Yes (Hospitalization)
  Sender: FDA-Public Use
  Company Number: 2006SE03001

PATIENT
  Age: 27303 Day
  Sex: Male

DRUGS (6)
  1. BLOPRESS [Suspect]
     Indication: HYPERTENSION
     Route: 048
     Dates: start: 20021119, end: 20060130
  2. PERSANTIN [Concomitant]
     Indication: GLOMERULONEPHRITIS CHRONIC
     Route: 048
  3. TENORMIN [Concomitant]
     Indication: TACHYCARDIA
     Route: 048
  4. MEILAX [Concomitant]
     Indication: PSYCHOSOMATIC DISEASE
     Route: 048
  5. ASPIRIN [Concomitant]
     Indication: THROMBOSIS PROPHYLAXIS
     Route: 048
  6. FLUITRAN [Concomitant]
     Indication: HYPERTENSION
     Route: 048
     Dates: end: 20060127

REACTIONS (2)
  - INTERSTITIAL LUNG DISEASE [None]
  - PNEUMONIA [None]
